FAERS Safety Report 8153095-6 (Version None)
Quarter: 2012Q1

REPORT INFORMATION
  Report Type: 
  Country: None (occurrence: None)
  Receive Date: 20120221
  Receipt Date: 20120209
  Transmission Date: 20120608
  Serious: No
  Sender: FDA-Public Use
  Company Number: US-JNJFOC-20120102004

PATIENT
  Sex: Female
  Weight: 54.43 kg

DRUGS (7)
  1. INVEGA SUSTENNA [Suspect]
     Route: 030
     Dates: start: 20110701
  2. LAMICTAL [Concomitant]
     Route: 065
  3. INVEGA SUSTENNA [Suspect]
     Route: 030
     Dates: start: 20100301, end: 20100801
  4. INVEGA SUSTENNA [Suspect]
     Indication: BIPOLAR DISORDER
     Route: 030
     Dates: start: 20111001
  5. INVEGA SUSTENNA [Suspect]
     Route: 030
     Dates: start: 20111204
  6. INVEGA SUSTENNA [Suspect]
     Dosage: DOCTOR ADMINISTERED HALF OF 39 MG DOSE BECAUSE OF PREGNANCY
     Route: 030
     Dates: start: 20101101, end: 20110401
  7. INVEGA SUSTENNA [Suspect]
     Route: 030

REACTIONS (7)
  - PRODUCT QUALITY ISSUE [None]
  - AGGRESSION [None]
  - DRUG DOSE OMISSION [None]
  - MATERNAL EXPOSURE DURING PREGNANCY [None]
  - INCORRECT DOSE ADMINISTERED [None]
  - CRYING [None]
  - ABNORMAL BEHAVIOUR [None]
